FAERS Safety Report 6983346-2 (Version None)
Quarter: 2010Q3

REPORT INFORMATION
  Report Type: 
  Country: None (occurrence: None)
  Receive Date: 20100910
  Receipt Date: 20100901
  Transmission Date: 20110219
  Serious: Yes (Other)
  Sender: FDA-Public Use
  Company Number: KV20100234

PATIENT
  Age: 36 Year
  Sex: Female

DRUGS (13)
  1. MORPHINE SULFATE [Suspect]
     Indication: PAIN
     Dosage: 1-2 TABS Q 4 HOURS PRN, ORAL
     Route: 048
     Dates: start: 20080731, end: 20090206
  2. LEVAQUIN [Concomitant]
  3. METRONIDAZOLE [Concomitant]
  4. DETROL LA [Concomitant]
  5. PROPOXYPHENE (DEXTROPROXYPHENE) [Concomitant]
  6. HYDROCHLOROTHIAZIDE [Concomitant]
  7. LYRICA [Concomitant]
  8. DIAZEPAM [Concomitant]
  9. HYDROCODONE W/APAP (HYDROCODONE, PARACETAMOL) [Concomitant]
  10. FUROSEMIDE [Concomitant]
  11. CARISOPRODOL [Concomitant]
  12. GABAPENTIN [Concomitant]
  13. MELOXICAM [Concomitant]

REACTIONS (5)
  - CARDIAC FAILURE CONGESTIVE [None]
  - COLITIS ISCHAEMIC [None]
  - DEAFNESS UNILATERAL [None]
  - ISCHAEMIA [None]
  - RENAL FAILURE ACUTE [None]
